FAERS Safety Report 7142681-8 (Version None)
Quarter: 2010Q4

REPORT INFORMATION
  Report Type: 
  Country: None (occurrence: None)
  Receive Date: 20101207
  Receipt Date: 20101122
  Transmission Date: 20110411
  Serious: Yes (Hospitalization)
  Sender: FDA-Public Use
  Company Number: BR-GENENTECH-307204

PATIENT
  Sex: Female
  Weight: 65 kg

DRUGS (8)
  1. RITUXIMAB [Suspect]
     Indication: RHEUMATOID ARTHRITIS
     Dosage: 1000 MG, UNK
     Route: 042
     Dates: start: 20100420, end: 20100505
  2. METICORTEN [Concomitant]
     Indication: PREMEDICATION
     Dosage: 60 MG, UNK
  3. METICORTEN [Concomitant]
     Dosage: 5 MG, UNK
  4. RIVOTRIL [Concomitant]
     Indication: PRODUCT USED FOR UNKNOWN INDICATION
     Dosage: .5 MG, UNK
  5. AZULFIN [Concomitant]
     Indication: PRODUCT USED FOR UNKNOWN INDICATION
     Dosage: UNK
  6. OMEPRAZOLE [Concomitant]
     Indication: PRODUCT USED FOR UNKNOWN INDICATION
     Dosage: 20 MG, UNK
  7. CELESTAMINE TAB [Concomitant]
     Indication: PREMEDICATION
     Dosage: 6 MG, UNK
  8. ACETAMINOPHEN [Concomitant]
     Indication: PREMEDICATION
     Dosage: 750 MG, UNK

REACTIONS (5)
  - ABSCESS LIMB [None]
  - BONE PAIN [None]
  - IMMUNODEFICIENCY [None]
  - LIMB OPERATION [None]
  - OEDEMA PERIPHERAL [None]
